FAERS Safety Report 20032658 (Version 3)
Quarter: 2021Q4

REPORT INFORMATION
  Report Type: Report from Study
  Country: US (occurrence: US)
  Receive Date: 20211103
  Receipt Date: 20211204
  Transmission Date: 20220304
  Serious: Yes (Hospitalization)
  Sender: FDA-Public Use
  Company Number: US-AMGEN-USACT2021167658

PATIENT
  Age: 12 Year
  Sex: Male
  Weight: 24 kg

DRUGS (4)
  1. DENOSUMAB [Suspect]
     Active Substance: DENOSUMAB
     Indication: Osteogenesis imperfecta
     Dosage: UNK MILLILITER
     Route: 058
     Dates: start: 20210712
  2. VITAMIN D NOS [Concomitant]
     Active Substance: VITAMIN D NOS
     Dosage: 1000 INTERNATIONAL UNIT
     Route: 048
     Dates: start: 20170807, end: 20211005
  3. LIDOCAINE [Concomitant]
     Active Substance: LIDOCAINE
     Dosage: 1 UNK
     Route: 061
     Dates: start: 20200310
  4. AMITRIPTYLINE [Concomitant]
     Active Substance: AMITRIPTYLINE
     Dosage: 10 MILLIGRAM
     Route: 048
     Dates: start: 20200310

REACTIONS (1)
  - Hypercalcaemia [Recovered/Resolved]

NARRATIVE: CASE EVENT DATE: 20211026
